FAERS Safety Report 4597573-5 (Version None)
Quarter: 2005Q1

REPORT INFORMATION
  Report Type: 
  Country: None (occurrence: None)
  Receive Date: 20050228
  Receipt Date: 20050228
  Transmission Date: 20050727
  Serious: Yes (Hospitalization)
  Sender: FDA-Public Use
  Company Number: None

PATIENT
  Age: 15 Year
  Sex: Male
  Weight: 61.2356 kg

DRUGS (4)
  1. PAXIL [Suspect]
     Indication: ANXIETY
     Dosage: ONCE DAILY ORAL
     Route: 048
     Dates: start: 20001020, end: 20030923
  2. PAXIL [Suspect]
     Indication: DEPRESSION
     Dosage: ONCE DAILY ORAL
     Route: 048
     Dates: start: 20001020, end: 20030923
  3. ADDERALL 10 [Suspect]
     Indication: ATTENTION DEFICIT/HYPERACTIVITY DISORDER
     Dosage: ONCE DAILY ORAL
     Route: 048
     Dates: start: 19940918, end: 20030923
  4. CONCERTA [Suspect]

REACTIONS (7)
  - ABNORMAL BEHAVIOUR [None]
  - AFFECTIVE DISORDER [None]
  - AGGRESSION [None]
  - BIPOLAR DISORDER [None]
  - EDUCATIONAL PROBLEM [None]
  - MANIA [None]
  - PREDISPOSITION TO DISEASE [None]
